FAERS Safety Report 7597995-4 (Version None)
Quarter: 2011Q3

REPORT INFORMATION
  Report Type: 
  Country: None (occurrence: None)
  Receive Date: 20110708
  Receipt Date: 20110630
  Transmission Date: 20111222
  Serious: Yes (Hospitalization)
  Sender: FDA-Public Use
  Company Number: US-PFIZER INC-2011146626

PATIENT
  Sex: Male
  Weight: 70.295 kg

DRUGS (12)
  1. TACROLIMUS [Suspect]
     Indication: RENAL TRANSPLANT
     Dosage: 4 MG, 2X/DAY
     Route: 048
     Dates: start: 20110413, end: 20110601
  2. BACTRIM [Concomitant]
     Indication: INFECTION PROPHYLAXIS
     Dosage: 400 MG, 1X/DAY
     Dates: start: 20110415
  3. CELLCEPT [Suspect]
     Indication: IMMUNOSUPPRESSANT DRUG THERAPY
     Dosage: 750/500/750 DAILY
     Dates: start: 20110527, end: 20110605
  4. POTASSIUM PHOSPHATE [Concomitant]
     Indication: HYPOKALAEMIA
     Dosage: 250 MG, 2X/DAY
     Dates: start: 20110527
  5. TRAZODONE [Concomitant]
     Indication: ANTIDEPRESSANT THERAPY
     Dosage: 100 MG, 1X/DAY AT BEDTIME
     Dates: start: 20110413
  6. PREDNISONE [Concomitant]
     Indication: IMMUNOSUPPRESSANT DRUG THERAPY
     Dosage: 5 MG, 1X/DAY
     Dates: start: 20110413
  7. FISH OIL [Concomitant]
     Indication: VITAMIN SUPPLEMENTATION
     Dosage: 1200 MG, 2X/DAY
     Dates: start: 20110413
  8. MULTI-VITAMINS [Concomitant]
     Indication: VITAMIN SUPPLEMENTATION
     Dosage: 1 DF, 1X/DAY
     Dates: start: 20110413
  9. VALCYTE [Concomitant]
     Indication: ANTIVIRAL PROPHYLAXIS
     Dosage: 450 MG, 1X/DAY
     Dates: start: 20110413
  10. NORVASC [Suspect]
     Indication: HYPERTENSION
     Dosage: 5 MG, 1X/DAY
     Dates: start: 20110530, end: 20110602
  11. NEXIUM [Concomitant]
     Indication: GASTROOESOPHAGEAL REFLUX PROPHYLAXIS
     Dosage: 40 MG, 1X/DAY
     Dates: start: 20110413
  12. TACROLIMUS [Suspect]
     Indication: IMMUNOSUPPRESSANT DRUG THERAPY

REACTIONS (2)
  - DIARRHOEA [None]
  - ELECTROLYTE IMBALANCE [None]
